FAERS Safety Report 8011018-4 (Version None)
Quarter: 2011Q4

REPORT INFORMATION
  Report Type: 
  Country: None (occurrence: None)
  Receive Date: 20111228
  Receipt Date: 20111216
  Transmission Date: 20120403
  Serious: Yes (Life-Threatening, Hospitalization)
  Sender: FDA-Public Use
  Company Number: GB-ELI_LILLY_AND_COMPANY-GB201112004697

PATIENT
  Age: 39 Week

DRUGS (3)
  1. OLANZAPINE [Suspect]
     Indication: SCHIZOPHRENIA
     Dosage: 15 MG, UNK
     Route: 064
     Dates: start: 20110107, end: 20110428
  2. CLOZAPINE [Suspect]
     Indication: SCHIZOPHRENIA
     Dosage: 350 MG, QD
     Route: 064
     Dates: start: 20090626, end: 20110106
  3. CLOZAPINE [Suspect]
     Dosage: 350 MG, QD
     Route: 064
     Dates: start: 20110429

REACTIONS (2)
  - FOETAL HEART RATE DECREASED [None]
  - FOETAL EXPOSURE DURING PREGNANCY [None]
